FAERS Safety Report 13086135 (Version 1)
Quarter: 2017Q1

REPORT INFORMATION
  Report Type: Spontaneous
  Country: US (occurrence: US)
  Receive Date: 20170104
  Receipt Date: 20170104
  Transmission Date: 20170428
  Serious: Yes (Hospitalization)
  Sender: FDA-Public Use
  Company Number: PHHY2016US179288

PATIENT
  Age: 45 Year
  Sex: Female

DRUGS (4)
  1. BETAMETHASONE. [Suspect]
     Active Substance: BETAMETHASONE
     Indication: BACK PAIN
     Dosage: 12 MG, UNK
     Route: 008
  2. LIDOCAINE. [Concomitant]
     Active Substance: LIDOCAINE
     Indication: LOCAL ANAESTHESIA
     Dosage: UNK
     Route: 058
  3. METHYLPREDNISOLONE. [Suspect]
     Active Substance: METHYLPREDNISOLONE
     Indication: BACK PAIN
     Dosage: 80 MG, UNK
     Route: 008
  4. LIDOCAINE. [Concomitant]
     Active Substance: LIDOCAINE
     Dosage: 2 ML, UNK
     Route: 008

REACTIONS (3)
  - Meningitis chemical [Recovered/Resolved]
  - Pneumocephalus [Recovered/Resolved]
  - Incorrect route of drug administration [Unknown]
